FAERS Safety Report 12152952 (Version 1)
Quarter: 2016Q1

REPORT INFORMATION
  Report Type: Spontaneous
  Country: US (occurrence: US)
  Receive Date: 20160305
  Receipt Date: 20160305
  Transmission Date: 20160526
  Serious: Yes (Other)
  Sender: FDA-Public Use
  Company Number: US-CIPLA LTD.-2016US01765

PATIENT

DRUGS (16)
  1. CAPECITABINE. [Suspect]
     Active Substance: CAPECITABINE
     Indication: CHOLANGIOCARCINOMA
     Dosage: UNK
     Route: 065
     Dates: start: 200710
  2. GEMCITABINE [Suspect]
     Active Substance: GEMCITABINE\GEMCITABINE HYDROCHLORIDE
     Indication: CHOLANGIOCARCINOMA
     Dosage: UNK
     Route: 065
     Dates: start: 200710
  3. OXALIPLATIN. [Suspect]
     Active Substance: OXALIPLATIN
     Dosage: UNK
     Route: 065
     Dates: start: 200910
  4. IRINOTECAN [Suspect]
     Active Substance: IRINOTECAN
     Dosage: UNK
     Route: 065
     Dates: start: 200910
  5. FLUOROURACIL. [Suspect]
     Active Substance: FLUOROURACIL
     Indication: CHOLANGIOCARCINOMA
     Dosage: UNK
     Route: 065
     Dates: start: 200710
  6. LEUCOVORIN. [Suspect]
     Active Substance: LEUCOVORIN
     Indication: CHOLANGIOCARCINOMA
     Dosage: UNK
     Route: 065
     Dates: start: 200710
  7. FLUOROURACIL. [Suspect]
     Active Substance: FLUOROURACIL
     Dosage: UNK
     Route: 065
     Dates: start: 200910
  8. DOCETAXEL. [Suspect]
     Active Substance: DOCETAXEL
     Indication: CHOLANGIOCARCINOMA
     Dosage: UNK
     Route: 065
     Dates: start: 200710
  9. MITOMYCIN C [Suspect]
     Active Substance: MITOMYCIN
     Indication: CHOLANGIOCARCINOMA
     Dosage: UNK
     Route: 065
     Dates: start: 200710
  10. MITOMYCIN C [Suspect]
     Active Substance: MITOMYCIN
     Dosage: UNK
     Route: 065
     Dates: start: 200910
  11. CETUXIMAB [Suspect]
     Active Substance: CETUXIMAB
     Indication: CHOLANGIOCARCINOMA
     Dosage: UNK
     Route: 065
     Dates: start: 200910
  12. LEUCOVORIN. [Suspect]
     Active Substance: LEUCOVORIN
     Dosage: UNK
     Route: 065
     Dates: start: 200910
  13. GEMCITABINE [Suspect]
     Active Substance: GEMCITABINE\GEMCITABINE HYDROCHLORIDE
     Dosage: UNK
     Route: 065
     Dates: start: 200910
  14. IRINOTECAN [Suspect]
     Active Substance: IRINOTECAN
     Indication: CHOLANGIOCARCINOMA
     Dosage: UNK
     Route: 065
     Dates: start: 200710
  15. OXALIPLATIN. [Suspect]
     Active Substance: OXALIPLATIN
     Indication: CHOLANGIOCARCINOMA
     Dosage: UNK
     Route: 065
     Dates: start: 200710
  16. DOCETAXEL. [Suspect]
     Active Substance: DOCETAXEL
     Dosage: UNK
     Route: 065
     Dates: start: 200910

REACTIONS (3)
  - Disease progression [Unknown]
  - Rash [Unknown]
  - Treatment failure [Unknown]
